FAERS Safety Report 5167018-5 (Version None)
Quarter: 2006Q4

REPORT INFORMATION
  Report Type: 
  Country: None (occurrence: None)
  Receive Date: 20061207
  Receipt Date: 20061123
  Transmission Date: 20070319
  Serious: No
  Sender: FDA-Public Use
  Company Number: 2006GB02137

PATIENT
  Age: 83 Year
  Sex: Male

DRUGS (6)
  1. SEROQUEL [Suspect]
     Indication: PSYCHOTIC DISORDER
     Route: 048
     Dates: start: 20051101
  2. RAMIPRIL [Concomitant]
  3. LEVOTHYROXINE SODIUM [Concomitant]
  4. ASPIRIN [Concomitant]
  5. LANSOPRAZOLE [Concomitant]
  6. SALBUTAMOL [Concomitant]

REACTIONS (1)
  - THROMBOCYTOPENIA [None]
